FAERS Safety Report 5136771-9 (Version None)
Quarter: 2006Q4

REPORT INFORMATION
  Report Type: 
  Country: None (occurrence: None)
  Receive Date: 20061023
  Receipt Date: 20061009
  Transmission Date: 20070319
  Serious: Yes (Hospitalization, Other)
  Sender: FDA-Public Use
  Company Number: 2006026078

PATIENT
  Age: 61 Year
  Sex: Male

DRUGS (4)
  1. NEURONTIN [Suspect]
     Indication: BIPOLAR DISORDER
     Dates: start: 20000509, end: 20010109
  2. DILANTIN [Suspect]
     Indication: CONVULSION
  3. LITHIUM CARBONATE [Suspect]
     Dates: start: 20000204, end: 20000413
  4. PAMELOR [Suspect]
     Indication: DEPRESSION
     Dosage: 150 MG (1 IN 1 D)
     Dates: start: 20010816, end: 20050815

REACTIONS (23)
  - ABASIA [None]
  - ATELECTASIS [None]
  - DECUBITUS ULCER [None]
  - DEEP VEIN THROMBOSIS [None]
  - DRUG INEFFECTIVE [None]
  - ENCEPHALOMALACIA [None]
  - FALL [None]
  - GUN SHOT WOUND [None]
  - HAEMODIALYSIS [None]
  - HEAD INJURY [None]
  - LOSS OF CONSCIOUSNESS [None]
  - MUSCULAR WEAKNESS [None]
  - PNEUMONIA [None]
  - POST-TRAUMATIC EPILEPSY [None]
  - PYREXIA [None]
  - RENAL FAILURE ACUTE [None]
  - RENAL TUBULAR NECROSIS [None]
  - RESPIRATORY FAILURE [None]
  - RHABDOMYOLYSIS [None]
  - SUBARACHNOID HAEMORRHAGE [None]
  - SUICIDE ATTEMPT [None]
  - THERAPEUTIC AGENT TOXICITY [None]
  - TRAUMATIC BRAIN INJURY [None]
